FAERS Safety Report 14030968 (Version 3)
Quarter: 2017Q4

REPORT INFORMATION
  Report Type: Report from Study
  Country: US (occurrence: US)
  Receive Date: 20171002
  Receipt Date: 20171114
  Transmission Date: 20180321
  Serious: Yes (Life-Threatening, Hospitalization, Other)
  Sender: FDA-Public Use
  Company Number: US-BAYER-2017-119085

PATIENT
  Age: 65 Year
  Sex: Male
  Weight: 88.4 kg

DRUGS (11)
  1. CEFEPIME [Concomitant]
     Active Substance: CEFEPIME HYDROCHLORIDE
  2. ADEMPAS [Suspect]
     Active Substance: RIOCIGUAT
     Indication: PULMONARY ARTERIAL HYPERTENSION
     Dosage: 2.5 MG, TID
     Route: 048
     Dates: start: 20170919
  3. ADEMPAS [Suspect]
     Active Substance: RIOCIGUAT
     Indication: PULMONARY ARTERIAL HYPERTENSION
     Dosage: 2.0 MG, TID
     Route: 048
  4. REMODULIN [Suspect]
     Active Substance: TREPROSTINIL
     Indication: PULMONARY ARTERIAL HYPERTENSION
     Dosage: 0.20 ?G/KG, UNK
     Route: 041
     Dates: start: 20161230
  5. ADEMPAS [Suspect]
     Active Substance: RIOCIGUAT
     Indication: PULMONARY ARTERIAL HYPERTENSION
     Dosage: UNK
     Dates: start: 20170613
  6. ADEMPAS [Suspect]
     Active Substance: RIOCIGUAT
     Indication: PULMONARY ARTERIAL HYPERTENSION
     Dosage: 1.5 MG, TID
     Route: 048
  7. REMODULIN [Suspect]
     Active Substance: TREPROSTINIL
     Indication: PULMONARY ARTERIAL HYPERTENSION
     Dosage: UNK
     Route: 058
  8. LETAIRIS [Concomitant]
     Active Substance: AMBRISENTAN
     Dosage: UNK
  9. ADEMPAS [Suspect]
     Active Substance: RIOCIGUAT
     Indication: PULMONARY ARTERIAL HYPERTENSION
     Dosage: UNK
     Dates: start: 20170606
  10. ADEMPAS [Suspect]
     Active Substance: RIOCIGUAT
     Indication: PULMONARY ARTERIAL HYPERTENSION
     Dosage: 1.0 MG, TID
     Route: 048
  11. ADEMPAS [Suspect]
     Active Substance: RIOCIGUAT
     Indication: PULMONARY ARTERIAL HYPERTENSION
     Dosage: 0.5 MG, TID
     Route: 048

REACTIONS (26)
  - Blood pressure systolic decreased [Unknown]
  - Pneumonia [None]
  - Dyspnoea exertional [Not Recovered/Not Resolved]
  - Gastroenteritis [None]
  - Staphylococcal bacteraemia [Unknown]
  - Oxygen saturation decreased [Not Recovered/Not Resolved]
  - Catheter site pruritus [Unknown]
  - Respiratory disorder [None]
  - Swelling face [Not Recovered/Not Resolved]
  - Nausea [Unknown]
  - Vomiting [Unknown]
  - Acute kidney injury [None]
  - Swelling face [Recovered/Resolved]
  - Bone swelling [Recovered/Resolved]
  - Vomiting [None]
  - Wrong technique in product usage process [None]
  - Device related sepsis [Unknown]
  - Scratch [Unknown]
  - Lip swelling [Not Recovered/Not Resolved]
  - Pain in jaw [Recovered/Resolved]
  - Dizziness [Unknown]
  - Device related infection [None]
  - Lethargy [Not Recovered/Not Resolved]
  - Infusion site erythema [Unknown]
  - Influenza like illness [None]
  - Mouth swelling [Not Recovered/Not Resolved]

NARRATIVE: CASE EVENT DATE: 2017
